FAERS Safety Report 9221875 (Version 1)
Quarter: 2013Q2

REPORT INFORMATION
  Report Type: Report from Study
  Country: FR (occurrence: FR)
  Receive Date: 20130410
  Receipt Date: 20130410
  Transmission Date: 20140414
  Serious: Yes (Other)
  Sender: FDA-Public Use
  Company Number: FR-CELGENEUS-056-C4047-12041429

PATIENT
  Age: 59 Year
  Sex: Male
  Weight: 75 kg

DRUGS (3)
  1. CC-4047 [Suspect]
     Indication: PLASMA CELL MYELOMA
     Dosage: 4 MILLIGRAM
     Route: 065
     Dates: start: 20120211, end: 20120227
  2. CC-4047 [Suspect]
     Dosage: 4 MILLIGRAM
     Route: 065
     Dates: start: 20120313, end: 20120403
  3. DEXAMETHASONE [Concomitant]
     Indication: PLASMA CELL MYELOMA
     Dosage: 40 MILLIGRAM
     Route: 065

REACTIONS (5)
  - Pancytopenia [Unknown]
  - Plasma cell myeloma [Not Recovered/Not Resolved]
  - Renal failure acute [Unknown]
  - Drug intolerance [Unknown]
  - Hypercalcaemia [Unknown]
